FAERS Safety Report 21387072 (Version 2)
Quarter: 2022Q4

REPORT INFORMATION
  Report Type: Spontaneous
  Country: US (occurrence: None)
  Receive Date: 20220928
  Receipt Date: 20221108
  Transmission Date: 20230113
  Serious: No
  Sender: FDA-Public Use
  Company Number: 2022A324931

PATIENT
  Age: 25037 Day
  Sex: Female
  Weight: 104.3 kg

DRUGS (1)
  1. BUDESONIDE\FORMOTEROL\GLYCOPYRRONIUM [Suspect]
     Active Substance: BUDESONIDE\FORMOTEROL\GLYCOPYRRONIUM
     Indication: Chronic obstructive pulmonary disease
     Dosage: 160/9/4.8 MCG/ 2 PUFFS/ TWO TIMES A DAY
     Route: 055
     Dates: start: 20220505

REACTIONS (8)
  - Dyspnoea [Not Recovered/Not Resolved]
  - Chest discomfort [Not Recovered/Not Resolved]
  - Device delivery system issue [Unknown]
  - Intentional device misuse [Unknown]
  - Product dose omission issue [Unknown]
  - Off label use [Unknown]
  - Incorrect dose administered by device [Unknown]
  - Wrong technique in device usage process [Unknown]

NARRATIVE: CASE EVENT DATE: 20220917
